FAERS Safety Report 18915085 (Version 1)
Quarter: 2021Q1

REPORT INFORMATION
  Report Type: Report from Study
  Country: JP (occurrence: JP)
  Receive Date: 20210218
  Receipt Date: 20210218
  Transmission Date: 20210420
  Serious: Yes (Other)
  Sender: FDA-Public Use
  Company Number: JP-CELLTRION INC.-2020JP025026

PATIENT

DRUGS (4)
  1. CT?P13 [Suspect]
     Active Substance: INFLIXIMAB-DYYB
     Indication: CROHN^S DISEASE
     Dosage: 360 MILLIGRAM (WEIGHT: 71.6 KG)
     Route: 041
     Dates: start: 20181111, end: 20181111
  2. MESALAZINE [Concomitant]
     Active Substance: MESALAMINE
     Dosage: 3000 MILLIGRAM, DAILY
     Route: 048
     Dates: start: 2018
  3. CT?P13 [Suspect]
     Active Substance: INFLIXIMAB-DYYB
     Dosage: 365 MG (WEIGHT:73 KG)
     Route: 041
     Dates: start: 20201110, end: 20201110
  4. CT?P13 [Suspect]
     Active Substance: INFLIXIMAB-DYYB
     Dosage: 360 MILLIGRAM (WEIGHT: 72 KG)
     Route: 041
     Dates: start: 20191012, end: 20191012

REACTIONS (7)
  - Hyperaemia [Recovered/Resolved]
  - Rash [Not Recovered/Not Resolved]
  - Chronic gastritis [Not Recovered/Not Resolved]
  - Rhinitis [Recovered/Resolved]
  - Overdose [Unknown]
  - Arteriosclerosis [Not Recovered/Not Resolved]
  - Rhinitis allergic [Not Recovered/Not Resolved]

NARRATIVE: CASE EVENT DATE: 20181208
